FAERS Safety Report 4273311-0 (Version None)
Quarter: 2004Q1

REPORT INFORMATION
  Report Type: 
  Country: None (occurrence: None)
  Receive Date: 20040115
  Receipt Date: 20040115
  Transmission Date: 20041129
  Serious: Yes (Hospitalization)
  Sender: FDA-Public Use
  Company Number: None

PATIENT
  Age: 79 Year
  Sex: Male
  Weight: 68 kg

DRUGS (10)
  1. METOLAZONE [Suspect]
     Indication: CARDIAC FAILURE CONGESTIVE
     Dosage: QD
     Dates: start: 20021025
  2. METOLAZONE [Suspect]
     Indication: HYPERTENSION
     Dosage: QD
     Dates: start: 20021025
  3. LISINOPRIL [Suspect]
     Indication: HYPERTENSION
     Dosage: QD
     Dates: start: 20020519
  4. METROPROLOL [Concomitant]
  5. FELODIPINE [Concomitant]
  6. FEXOFENADINE [Concomitant]
  7. THEOPHYLLINE [Concomitant]
  8. PREDNISONE [Concomitant]
  9. COLCHICINE [Concomitant]
  10. ALLOPRINOL [Concomitant]

REACTIONS (1)
  - RENAL FAILURE ACUTE [None]
